FAERS Safety Report 12888651 (Version 1)
Quarter: 2016Q4

REPORT INFORMATION
  Report Type: Report from Study
  Country: MX (occurrence: MX)
  Receive Date: 20161027
  Receipt Date: 20161027
  Transmission Date: 20170207
  Serious: Yes (Disabling)
  Sender: FDA-Public Use
  Company Number: PHHY2016MX147574

PATIENT
  Sex: Female

DRUGS (1)
  1. STALEVO [Suspect]
     Active Substance: CARBIDOPA\ENTACAPONE\LEVODOPA
     Indication: CEREBRAL DISORDER
     Dosage: 2 DF (EACH TABLET CONTAINS 150 MG OF LEVODOPA, 37.5 MG OF CARBIDOPA AND 200 MG OF ENTACAPONE), QD
     Route: 065
     Dates: start: 2013, end: 2015

REACTIONS (6)
  - Decubitus ulcer [Unknown]
  - Speech disorder [Unknown]
  - Product use issue [Recovered/Resolved]
  - Dehydration [Unknown]
  - Mobility decreased [Unknown]
  - Bone disorder [Unknown]

NARRATIVE: CASE EVENT DATE: 2013
